FAERS Safety Report 5691944-1 (Version None)
Quarter: 2008Q2

REPORT INFORMATION
  Report Type: 
  Country: None (occurrence: None)
  Receive Date: 20080331
  Receipt Date: 20080320
  Transmission Date: 20081010
  Serious: Yes (Other)
  Sender: FDA-Public Use
  Company Number: 08H-087-0313953-00

PATIENT
  Age: 2 Year
  Sex: Male

DRUGS (1)
  1. PRECEDEX [Suspect]
     Indication: SEDATIVE THERAPY

REACTIONS (2)
  - CENTRAL VENOUS PRESSURE INCREASED [None]
  - HEART RATE INCREASED [None]
